FAERS Safety Report 7898023-3 (Version None)
Quarter: 2011Q4

REPORT INFORMATION
  Report Type: 
  Country: None (occurrence: None)
  Receive Date: 20111107
  Receipt Date: 20111107
  Transmission Date: 20120403
  Serious: No
  Sender: FDA-Public Use
  Company Number: None

PATIENT
  Sex: Male
  Weight: 95.254 kg

DRUGS (2)
  1. RIBAVIRIN [Concomitant]
     Route: 048
     Dates: start: 20060101, end: 20070101
  2. INTERFERON [Suspect]
     Indication: HEPATITIS C
     Route: 023
     Dates: start: 20060101, end: 20070101

REACTIONS (2)
  - ILL-DEFINED DISORDER [None]
  - COGNITIVE DISORDER [None]
